FAERS Safety Report 9014139 (Version 1)
Quarter: 2013Q1

REPORT INFORMATION
  Report Type: Spontaneous
  Country: JP (occurrence: JP)
  Receive Date: 20130115
  Receipt Date: 20130115
  Transmission Date: 20140127
  Serious: Yes (Hospitalization)
  Sender: FDA-Public Use
  Company Number: JP-009507513-1301JPN005857

PATIENT
  Sex: Male

DRUGS (2)
  1. PROPECIA TABLETS 1MG [Suspect]
     Dosage: DAILY DOSAGE UNKNOWN , HAS BEEN TAKEN FOR ABOUT FIVE YEARS
     Route: 048
     Dates: start: 2008
  2. ANTIMICROBIAL (UNSPECIFIED) [Concomitant]
     Route: 048

REACTIONS (1)
  - Hepatitis acute [Unknown]
